FAERS Safety Report 10602892 (Version 2)
Quarter: 2015Q1

REPORT INFORMATION
  Report Type: Spontaneous
  Country: US (occurrence: US)
  Receive Date: 20141124
  Receipt Date: 20150206
  Transmission Date: 20150720
  Serious: Yes (Hospitalization, Other)
  Sender: FDA-Public Use
  Company Number: US-ELI_LILLY_AND_COMPANY-US201411008326

PATIENT
  Sex: Male
  Weight: 72.56 kg

DRUGS (1)
  1. HUMALOG [Suspect]
     Active Substance: INSULIN LISPRO
     Indication: DIABETES MELLITUS
     Dosage: 30 U, BID
     Route: 058
     Dates: start: 201405, end: 20141113

REACTIONS (8)
  - Dysarthria [Unknown]
  - Injection site erythema [Unknown]
  - Disorientation [Unknown]
  - Rash generalised [Recovered/Resolved]
  - Blood glucose decreased [Recovering/Resolving]
  - Rash [Recovered/Resolved]
  - Confusional state [Unknown]
  - Injection site pruritus [Unknown]

NARRATIVE: CASE EVENT DATE: 201405
